FAERS Safety Report 6725903-4 (Version None)
Quarter: 2010Q2

REPORT INFORMATION
  Report Type: 
  Country: None (occurrence: None)
  Receive Date: 20100514
  Receipt Date: 20100421
  Transmission Date: 20101027
  Serious: No
  Sender: FDA-Public Use
  Company Number: PHHY2009JP43591

PATIENT

DRUGS (2)
  1. NEORAL [Suspect]
     Indication: RENAL TRANSPLANT
     Dosage: 150 MG/DAY
     Route: 048
     Dates: start: 20070401
  2. NEORAL [Interacting]
     Dosage: UNK

REACTIONS (4)
  - DEPRESSION [None]
  - DRUG INTERACTION [None]
  - DRUG LEVEL DECREASED [None]
  - RENAL IMPAIRMENT [None]
